FAERS Safety Report 13184010 (Version 1)
Quarter: 2017Q1

REPORT INFORMATION
  Report Type: Spontaneous
  Country: PT (occurrence: PT)
  Receive Date: 20170203
  Receipt Date: 20170203
  Transmission Date: 20170428
  Serious: Yes (Other)
  Sender: FDA-Public Use
  Company Number: PT-009507513-1701PRT014341

PATIENT
  Age: 19 Year
  Sex: Female

DRUGS (2)
  1. IMPLANON [Suspect]
     Active Substance: ETONOGESTREL
     Indication: CONTRACEPTION
     Dosage: UNK
     Route: 059
     Dates: start: 201601
  2. PENICILLIN G [Suspect]
     Active Substance: PENICILLIN G
     Indication: TONSILLITIS
     Dosage: UNK
     Route: 030
     Dates: start: 201701

REACTIONS (3)
  - Vaginal haemorrhage [Not Recovered/Not Resolved]
  - Tonsillitis bacterial [Unknown]
  - Amenorrhoea [Unknown]

NARRATIVE: CASE EVENT DATE: 201601
